FAERS Safety Report 18600762 (Version 1)
Quarter: 2020Q4

REPORT INFORMATION
  Report Type: Spontaneous
  Country: HU (occurrence: HU)
  Receive Date: 20201210
  Receipt Date: 20201210
  Transmission Date: 20210114
  Serious: Yes (Death, Hospitalization, Other)
  Sender: FDA-Public Use
  Company Number: HU-GILEAD-2020-0508291

PATIENT

DRUGS (11)
  1. CLEXANE [Concomitant]
     Active Substance: ENOXAPARIN SODIUM
     Indication: THROMBOSIS PROPHYLAXIS
     Dosage: 0.4 ML, QD
     Dates: start: 20201120
  2. VEKLURY [Suspect]
     Active Substance: REMDESIVIR
     Dosage: 100 MG, QD
     Route: 042
     Dates: start: 20201121, end: 20201124
  3. QUAMATEL [Concomitant]
     Active Substance: FAMOTIDINE
     Indication: PROPHYLAXIS AGAINST GASTROINTESTINAL ULCER
     Dosage: 40 MG
     Route: 048
     Dates: start: 20201120
  4. KLACID [CLARITHROMYCIN] [Concomitant]
     Active Substance: CLARITHROMYCIN
     Indication: PNEUMONIA
     Dosage: 250 MG, BID
     Route: 048
     Dates: start: 20201119, end: 20201125
  5. POTASSIUM CHLORIDE. [Concomitant]
     Active Substance: POTASSIUM CHLORIDE
     Dosage: 1000 MG, QD
     Route: 048
     Dates: start: 20201120
  6. VEKLURY [Suspect]
     Active Substance: REMDESIVIR
     Indication: COVID-19 PNEUMONIA
     Dosage: 200 MG, ONCE
     Route: 042
     Dates: start: 20201120, end: 20201120
  7. CEFTRIAXONE. [Concomitant]
     Active Substance: CEFTRIAXONE
     Indication: PNEUMONIA
     Dosage: 2 G, QD
     Route: 042
     Dates: start: 20201119, end: 20201125
  8. MEDROL [Concomitant]
     Active Substance: METHYLPREDNISOLONE
     Indication: PNEUMONIA
     Dosage: 40 MG, BID
  9. THEOSPIREX [THEOPHYLLINE] [Concomitant]
     Indication: ANTASTHMATIC DRUG LEVEL THERAPEUTIC
     Dosage: 150 MG, BID
     Route: 048
     Dates: start: 20201120
  10. SALSOL [SODIUM CHLORIDE] [Concomitant]
     Dosage: 500 ML, QD
     Route: 042
  11. ACTRAPID [Concomitant]
     Active Substance: INSULIN HUMAN
     Indication: DIABETES MELLITUS
     Dosage: 4-6 UNITS PRN
     Route: 058

REACTIONS (2)
  - Renal impairment [Fatal]
  - Acidosis [Fatal]

NARRATIVE: CASE EVENT DATE: 20201123
